FAERS Safety Report 12174339 (Version 1)
Quarter: 2016Q1

REPORT INFORMATION
  Report Type: Report from Study
  Country: US (occurrence: US)
  Receive Date: 20160312
  Receipt Date: 20160312
  Transmission Date: 20160526
  Serious: Yes (Other)
  Sender: FDA-Public Use
  Company Number: US-ACCORD-038684

PATIENT
  Age: 35 Year

DRUGS (3)
  1. CYTARABINE/CYTARABINE HYDROCHLORIDE/CYTARABINE OCFOSFATE [Concomitant]
     Indication: B-CELL TYPE ACUTE LEUKAEMIA
     Dosage: ALTERNATING THERAPY ON DAYS 2 AND 7 OF EACH HYPERCVAD COURSE FOR A TOTAL OF 8 OR 12 DOSES
     Route: 037
     Dates: start: 20130816
  2. METHOTREXATE [Suspect]
     Active Substance: METHOTREXATE
     Indication: B-CELL TYPE ACUTE LEUKAEMIA
     Dosage: ALSO RECEIVED CYCLICAL FROM 16-AUG-2013.?AUGMENTED HYPER-CVAD
     Route: 037
     Dates: start: 201307, end: 201309
  3. ARA-C (DEPOCYT) [Concomitant]
     Indication: B-CELL TYPE ACUTE LEUKAEMIA
     Route: 039
     Dates: start: 201307, end: 201309

REACTIONS (2)
  - Myelopathy [Recovering/Resolving]
  - Metastases to meninges [Unknown]

NARRATIVE: CASE EVENT DATE: 201309
